FAERS Safety Report 9228188 (Version 1)
Quarter: 2013Q2

REPORT INFORMATION
  Report Type: Spontaneous
  Country: US (occurrence: None)
  Receive Date: 20130411
  Receipt Date: 20130411
  Transmission Date: 20140414
  Serious: Yes (Other)
  Sender: FDA-Public Use
  Company Number: None

PATIENT
  Sex: Male

DRUGS (2)
  1. ZYTIGA [Suspect]
     Indication: PROSTATE CANCER
     Dosage: 1000MG DAILY ORAL
     Route: 048
     Dates: start: 20130226
  2. PREDNISONE [Concomitant]

REACTIONS (2)
  - Weight increased [None]
  - Waist circumference increased [None]
